FAERS Safety Report 15123628 (Version 1)
Quarter: 2018Q3

REPORT INFORMATION
  Report Type: Spontaneous
  Country: US (occurrence: US)
  Receive Date: 20180710
  Receipt Date: 20180710
  Transmission Date: 20181010
  Serious: Yes (Hospitalization, Other)
  Sender: FDA-Public Use
  Company Number: US-ABBVIE-18K-163-2292705-00

PATIENT
  Sex: Male

DRUGS (4)
  1. HUMIRA [Suspect]
     Active Substance: ADALIMUMAB
     Indication: CROHN^S DISEASE
     Route: 058
     Dates: start: 201402, end: 20180130
  2. ACETAMINOPHEN. [Concomitant]
     Active Substance: ACETAMINOPHEN
     Indication: PRODUCT USED FOR UNKNOWN INDICATION
     Dosage: PRN
     Route: 048
  3. CYANOCOBALAMIN. [Concomitant]
     Active Substance: CYANOCOBALAMIN
     Indication: PRODUCT USED FOR UNKNOWN INDICATION
     Dosage: 1000 MCG/ML
  4. HYDROCODONE [Concomitant]
     Active Substance: HYDROCODONE
     Indication: PRODUCT USED FOR UNKNOWN INDICATION
     Route: 048

REACTIONS (17)
  - Small intestine adenocarcinoma [Not Recovered/Not Resolved]
  - Intestinal dilatation [Unknown]
  - Abdominal mass [Unknown]
  - Pneumoperitoneum [Unknown]
  - Bladder transitional cell carcinoma [Unknown]
  - Hepatic lesion [Unknown]
  - Gastrointestinal wall thickening [Unknown]
  - Peritoneal neoplasm [Unknown]
  - Hepatic cancer metastatic [Unknown]
  - Peritonitis [Unknown]
  - Crohn^s disease [Unknown]
  - Abdominal abscess [Unknown]
  - Pulmonary mass [Unknown]
  - Purulence [Unknown]
  - Vitamin B12 deficiency [Unknown]
  - Mixed adenoneuroendocrine carcinoma [Not Recovered/Not Resolved]
  - Transitional cell carcinoma [Unknown]

NARRATIVE: CASE EVENT DATE: 2014
